FAERS Safety Report 9454040 (Version 1)
Quarter: 2013Q3

REPORT INFORMATION
  Report Type: Report from Study
  Country: CZ (occurrence: CZ)
  Receive Date: 20130812
  Receipt Date: 20130812
  Transmission Date: 20140515
  Serious: Yes (Death)
  Sender: FDA-Public Use
  Company Number: CZ-PFIZER INC-2013198848

PATIENT
  Sex: Male

DRUGS (1)
  1. SUTENT [Suspect]
     Indication: RENAL CELL CARCINOMA
     Dosage: UNK

REACTIONS (6)
  - Death [Fatal]
  - Mucosal inflammation [Unknown]
  - Decreased appetite [Unknown]
  - Hair colour changes [Unknown]
  - Disease progression [Unknown]
  - Renal cell carcinoma [Unknown]
